FAERS Safety Report 4685835-2 (Version None)
Quarter: 2005Q2

REPORT INFORMATION
  Report Type: 
  Country: None (occurrence: None)
  Receive Date: 20050607
  Receipt Date: 20050607
  Transmission Date: 20051028
  Serious: Yes (Other)
  Sender: FDA-Public Use
  Company Number: None

PATIENT
  Age: 52 Year
  Sex: Male
  Weight: 116 kg

DRUGS (1)
  1. GABAPENTIN [Suspect]
     Indication: HYPERAESTHESIA
     Dosage: 300 MG PO QHS
     Route: 048
     Dates: start: 20050304, end: 20050407

REACTIONS (1)
  - RASH PRURITIC [None]
